FAERS Safety Report 7505628-8 (Version None)
Quarter: 2011Q2

REPORT INFORMATION
  Report Type: 
  Country: None (occurrence: None)
  Receive Date: 20110526
  Receipt Date: 20110520
  Transmission Date: 20111010
  Serious: Yes (Life-Threatening, Hospitalization, Disabling)
  Sender: FDA-Public Use
  Company Number: JP-PFIZER INC-2011108387

PATIENT
  Age: 6 Year
  Sex: Male

DRUGS (7)
  1. NEUQUINON [Concomitant]
     Dosage: UNK, DAILY
     Route: 048
     Dates: start: 20061208
  2. SOMATROPIN RDNA [Suspect]
     Indication: GROWTH HORMONE DEFICIENCY
     Dosage: 0.3 MG, 6 TIMES/WEEK
     Route: 058
     Dates: start: 20081204
  3. SOMATROPIN RDNA [Suspect]
     Dosage: 0.3 MG, 6 TIMES/WEEK
     Route: 058
     Dates: start: 20081228
  4. SOMATROPIN RDNA [Suspect]
     Dosage: 0.3 MG, 6 TIMES/WEEK
     Route: 058
     Dates: start: 20090608
  5. SOMATROPIN RDNA [Suspect]
     Dosage: 0.3 MG, 7 TIMES/WEEK
     Route: 058
     Dates: start: 20091221, end: 20100730
  6. ALINAMIN F [Concomitant]
     Dosage: UNK, DAILY
     Route: 048
     Dates: start: 20061208
  7. LEVOCARNITINE [Concomitant]
     Dosage: UNK, DAILY
     Route: 048
     Dates: start: 20061208

REACTIONS (1)
  - MELAS SYNDROME [None]
